FAERS Safety Report 20092967 (Version 1)
Quarter: 2021Q4

REPORT INFORMATION
  Report Type: Spontaneous
  Country: US (occurrence: US)
  Receive Date: 20211120
  Receipt Date: 20211120
  Transmission Date: 20220304
  Serious: Yes (Hospitalization)
  Sender: FDA-Public Use
  Company Number: None

PATIENT
  Age: 39 Year
  Sex: Female
  Weight: 87 kg

DRUGS (6)
  1. TYLENOL EXTRA STRENGTH [Suspect]
     Active Substance: ACETAMINOPHEN
     Indication: Systemic lupus erythematosus
     Dosage: ACETAMINOPHEN 500 MG AT AN UNKNOWN DOSE
     Route: 048
     Dates: start: 20030512, end: 20030512
  2. VICODIN [Suspect]
     Active Substance: ACETAMINOPHEN\HYDROCODONE BITARTRATE
     Indication: Systemic lupus erythematosus
     Dosage: ACETAMINOPHEN 500 MG/HYDROCODONE BITARTRATE 5 MG AT AN UNKNOWN DOSE
     Route: 048
     Dates: start: 20030512, end: 20030512
  3. ORAMORPH SR SUSTAINED RELEASE [Suspect]
     Active Substance: MORPHINE SULFATE
     Indication: Systemic lupus erythematosus
     Dosage: UNKNOWN DOSE
     Route: 048
     Dates: start: 20030512, end: 20030512
  4. PREDNISONE [Concomitant]
     Active Substance: PREDNISONE
     Indication: Product used for unknown indication
     Dosage: 10 MG
     Route: 065
     Dates: end: 20030512
  5. EFFEXOR [Concomitant]
     Active Substance: VENLAFAXINE HYDROCHLORIDE
     Indication: Product used for unknown indication
     Dosage: 20 MG
     Route: 065
     Dates: end: 20030512
  6. XANAX [Concomitant]
     Active Substance: ALPRAZOLAM
     Indication: Product used for unknown indication
     Route: 065
     Dates: end: 20030512

REACTIONS (3)
  - Acute hepatic failure [Recovered/Resolved]
  - Product administration error [Recovered/Resolved]
  - Overdose [Unknown]
